FAERS Safety Report 23014381 (Version 1)
Quarter: 2023Q4

REPORT INFORMATION
  Report Type: Spontaneous
  Country: US (occurrence: US)
  Receive Date: 20231002
  Receipt Date: 20231002
  Transmission Date: 20240110
  Serious: No
  Sender: FDA-Public Use
  Company Number: US-SANDOZ-SDZ2023US034725

PATIENT
  Age: 71 Year
  Sex: Male
  Weight: 78.93 kg

DRUGS (2)
  1. DORZOLAMIDE HYDROCHLORIDE [Suspect]
     Active Substance: DORZOLAMIDE HYDROCHLORIDE
     Indication: Product used for unknown indication
     Dosage: N/A N/A 4 DOSE EVERY N/A N/A
     Route: 047
     Dates: start: 20210101, end: 20230918
  2. TIMOLOL MALEATE [Suspect]
     Active Substance: TIMOLOL MALEATE
     Indication: Product used for unknown indication
     Dosage: N/A N/A 4 DOSE EVERY N/A N/A
     Route: 047
     Dates: start: 20210101, end: 20230918

REACTIONS (4)
  - Erythema [Recovering/Resolving]
  - Pain [Recovering/Resolving]
  - Eye discharge [Recovering/Resolving]
  - Corneal irritation [Recovering/Resolving]

NARRATIVE: CASE EVENT DATE: 20230820
